FAERS Safety Report 9214260 (Version 2)
Quarter: 2013Q2

REPORT INFORMATION
  Report Type: Spontaneous
  Country: FR (occurrence: FR)
  Receive Date: 20130405
  Receipt Date: 20130429
  Transmission Date: 20140414
  Serious: Yes (Life-Threatening, Hospitalization)
  Sender: FDA-Public Use
  Company Number: FR-PFIZER INC-2013104887

PATIENT
  Age: 27 Year
  Sex: Male

DRUGS (13)
  1. RAPAMUNE [Suspect]
     Indication: GRAFT VERSUS HOST DISEASE
     Dosage: 2 MG, 1X/DAY
     Route: 048
     Dates: start: 20130216, end: 20130225
  2. RAPAMUNE [Suspect]
     Dosage: 1 MG, 1X/DAY
     Route: 048
     Dates: start: 20130226, end: 20130305
  3. RAPAMUNE [Suspect]
     Dosage: 0.5 MG, 1X/DAY
     Route: 048
     Dates: start: 20130306, end: 20130311
  4. AMLODIPINE [Concomitant]
     Dosage: 5 MG, 1X/DAY IN THE MORNING
  5. TRIATEC [Concomitant]
     Dosage: 5 MG 1X/DAY IN THE EVENING
  6. CORTANCYL [Concomitant]
     Dosage: 25 MG, 1X/DAY IN THE MORNING
  7. URSOLVAN [Concomitant]
     Dosage: 2 DF, 2X/DAY 2 IN THE MORNING AND 2 IN THE EVENING
  8. KAYEXALATE [Concomitant]
     Dosage: EVERY 2 DAYS
  9. ACTONEL [Concomitant]
     Dosage: 30 MG, WEEKLY
  10. ACETYLCYSTEINE [Concomitant]
     Dosage: 200 MG, UNK
  11. NORSET [Concomitant]
     Dosage: 15 MG, 1X/DAY IN THE EVENING
  12. ORACILLINE [Concomitant]
     Dosage: 1000000 IU, 2X/DAY
  13. PRAXILENE [Concomitant]
     Dosage: 200 MG, 2X/DAY

REACTIONS (3)
  - Vasculitis [Not Recovered/Not Resolved]
  - Peripheral artery thrombosis [Not Recovered/Not Resolved]
  - Off label use [Unknown]
